FAERS Safety Report 19683291 (Version 1)
Quarter: 2021Q3

REPORT INFORMATION
  Report Type: Spontaneous
  Country: US (occurrence: US)
  Receive Date: 20210810
  Receipt Date: 20210810
  Transmission Date: 20211014
  Serious: No
  Sender: FDA-Public Use
  Company Number: US-FRESENIUS KABI-FK202108329

PATIENT
  Age: 18 Year
  Sex: Female

DRUGS (3)
  1. OMEGAVEN [Suspect]
     Active Substance: FISH OIL
     Indication: PRODUCT USED FOR UNKNOWN INDICATION
     Route: 065
  2. SMOFLIPID [Suspect]
     Active Substance: FISH OIL\MEDIUM-CHAIN TRIGLYCERIDES\OLIVE OIL\SOYBEAN OIL
     Indication: PRODUCT USED FOR UNKNOWN INDICATION
     Dosage: UNKNOWN
     Route: 065
  3. OMEGAVEN [Suspect]
     Active Substance: FISH OIL
     Route: 065

REACTIONS (4)
  - Contraindicated product administered [Unknown]
  - Drug hypersensitivity [Unknown]
  - Intentional product use issue [Unknown]
  - Fatty acid deficiency [Unknown]
